FAERS Safety Report 18999253 (Version 2)
Quarter: 2021Q3

REPORT INFORMATION
  Report Type: Spontaneous
  Country: GB (occurrence: GB)
  Receive Date: 20210312
  Receipt Date: 20210804
  Transmission Date: 20211014
  Serious: Yes (Disabling, Other)
  Sender: FDA-Public Use
  Company Number: GB-SUN PHARMACEUTICAL INDUSTRIES LTD-2021RR-285616

PATIENT
  Age: 74 Year
  Sex: Female
  Weight: 63 kg

DRUGS (2)
  1. DONEPEZIL. [Suspect]
     Active Substance: DONEPEZIL
     Indication: PRODUCT USED FOR UNKNOWN INDICATION
     Dosage: ONE TO BE TAKEN AT NIGHT [AS PER SHARED CARE WITH DEMENTIA TEAM]
     Route: 065
     Dates: start: 20210118, end: 20210219
  2. ASTRAZENECA COVID?19 VACCINE [Concomitant]
     Active Substance: AZD-1222
     Indication: PRODUCT USED FOR UNKNOWN INDICATION
     Dosage: 1 DOSE BY INTRAMUSCULAR INJECTION
     Route: 030
     Dates: start: 20210212

REACTIONS (1)
  - Syncope [Unknown]
